FAERS Safety Report 6221554-9 (Version None)
Quarter: 2009Q2

REPORT INFORMATION
  Report Type: 
  Country: None (occurrence: None)
  Receive Date: 20090610
  Receipt Date: 20090601
  Transmission Date: 20091009
  Serious: Yes (Other)
  Sender: FDA-Public Use
  Company Number: PHEH2009US05573

PATIENT
  Sex: Female

DRUGS (6)
  1. DIOVAN [Suspect]
  2. NORVASC [Suspect]
  3. PACERONE [Suspect]
  4. LASIX [Suspect]
  5. METOPROLOL SUCCINATE [Suspect]
  6. PRAVACHOL [Suspect]

REACTIONS (1)
  - NEOPLASM MALIGNANT [None]
